FAERS Safety Report 4286215-4 (Version None)
Quarter: 2004Q1

REPORT INFORMATION
  Report Type: 
  Country: None (occurrence: None)
  Receive Date: 20040114
  Receipt Date: 20030820
  Transmission Date: 20041129
  Serious: Yes (Hospitalization)
  Sender: FDA-Public Use
  Company Number: 345113

PATIENT
  Age: 82 Year
  Sex: Female
  Weight: 50 kg

DRUGS (9)
  1. ROCEPHIN [Suspect]
     Indication: SEPSIS
     Dosage: 2 GRAM  DAILY ITNRAMUSCULAR
     Route: 030
     Dates: start: 20030311, end: 20030513
  2. POLARAMINE [Suspect]
     Indication: DRUG USE FOR UNKNOWN INDICATION
     Dosage: 2 MG 3 PER DAY ORAL
     Route: 048
     Dates: start: 20030413, end: 20030513
  3. ATENOLOL [Concomitant]
  4. VASTAREL (TRIMETAZIDINE) [Concomitant]
  5. FOLIC ACID [Concomitant]
  6. DAFALGAN (ACETAMINOPHEN) [Concomitant]
  7. LOVENOX [Concomitant]
  8. POTASSIUM CHLORIDE [Concomitant]
  9. VIRLIX (CETIRIZINE HYDROCHLORIDE) [Concomitant]

REACTIONS (2)
  - AGRANULOCYTOSIS [None]
  - NEUTROPENIA [None]
